FAERS Safety Report 8188132-6 (Version None)
Quarter: 2012Q1

REPORT INFORMATION
  Report Type: 
  Country: None (occurrence: None)
  Receive Date: 20120306
  Receipt Date: 20111021
  Transmission Date: 20120608
  Serious: Yes (Other)
  Sender: FDA-Public Use
  Company Number: US-BAYER-200921477NA

PATIENT
  Age: 48 Year
  Sex: Male
  Weight: 97.959 kg

DRUGS (32)
  1. MAGNEVIST [Suspect]
     Indication: PERIPHERAL ARTERIAL OCCLUSIVE DISEASE
     Dosage: UNK
     Dates: start: 20020710, end: 20020710
  2. MAGNEVIST [Suspect]
     Dosage: UNK
     Dates: start: 20060725, end: 20060725
  3. CLEOCIN HYDROCHLORIDE [Concomitant]
     Dosage: EXTERNAL USE WHEN NEEDED
  4. PRAVASTATIN [Concomitant]
  5. BENOXYL [BENZOYL PEROXIDE] [Concomitant]
     Dosage: EXTERNAL USE WHEN NEEDED
  6. COLACE [Concomitant]
  7. FUROSEMIDE [Concomitant]
  8. MAGNEVIST [Suspect]
     Dosage: UNK
     Dates: start: 20020703, end: 20020703
  9. MAGNEVIST [Suspect]
     Dosage: UNK
     Dates: start: 20030311, end: 20030311
  10. OPTIMARK [Suspect]
     Indication: PRODUCT USED FOR UNKNOWN INDICATION
  11. ZEMPLAR [Concomitant]
  12. NORVASC [Concomitant]
  13. MAGNEVIST [Suspect]
     Dosage: UNK
     Dates: start: 20050517, end: 20050517
  14. NITROGLYCERIN [Concomitant]
  15. PRAVACHOL [Concomitant]
  16. PROHANCE [Suspect]
     Indication: PRODUCT USED FOR UNKNOWN INDICATION
  17. AMITRIPTYLINE HCL [Concomitant]
  18. COUMADIN [Concomitant]
  19. COLCHICINE [Concomitant]
  20. VALIUM [Concomitant]
  21. MAGNEVIST [Suspect]
     Dosage: UNK
     Dates: start: 20010427, end: 20010427
  22. MULTIHANCE [Suspect]
     Indication: PRODUCT USED FOR UNKNOWN INDICATION
  23. ZOCOR [Concomitant]
  24. PREDNISONE TAB [Concomitant]
  25. NEURONTIN [Concomitant]
  26. SEVELAMER [Concomitant]
  27. MAGNEVIST [Suspect]
     Indication: ANGIOGRAM
     Dosage: UNK
     Dates: start: 20010419, end: 20010419
  28. OMNISCAN [Suspect]
     Indication: PRODUCT USED FOR UNKNOWN INDICATION
  29. CLONIDINE HCL [Concomitant]
  30. EPOGEN [Concomitant]
  31. QUINAPRIL [Concomitant]
  32. LYRICA [Concomitant]

REACTIONS (23)
  - ERYTHEMA [None]
  - HYPOAESTHESIA [None]
  - PAIN IN EXTREMITY [None]
  - GAIT DISTURBANCE [None]
  - PARAESTHESIA [None]
  - JOINT CONTRACTURE [None]
  - SKIN FIBROSIS [None]
  - PRURITUS [None]
  - MUSCLE CONTRACTURE [None]
  - ASTHENIA [None]
  - NEPHROGENIC SYSTEMIC FIBROSIS [None]
  - PAIN [None]
  - SKIN TIGHTNESS [None]
  - SKIN HYPERTROPHY [None]
  - SCLERODERMA [None]
  - EMOTIONAL DISTRESS [None]
  - JOINT RANGE OF MOTION DECREASED [None]
  - OEDEMA PERIPHERAL [None]
  - NODULE [None]
  - GRIP STRENGTH DECREASED [None]
  - FIBROSIS [None]
  - MUSCULOSKELETAL STIFFNESS [None]
  - SKIN INDURATION [None]
